FAERS Safety Report 18207698 (Version 1)
Quarter: 2020Q3

REPORT INFORMATION
  Report Type: Spontaneous
  Country: US (occurrence: US)
  Receive Date: 20200828
  Receipt Date: 20200828
  Transmission Date: 20201103
  Serious: No
  Sender: FDA-Public Use
  Company Number: US-PFIZER INC-2020332356

PATIENT
  Age: 42 Year
  Sex: Male

DRUGS (3)
  1. CHANTIX [Suspect]
     Active Substance: VARENICLINE TARTRATE
     Dosage: 0.5 MG, 2X/DAY
  2. CHANTIX [Suspect]
     Active Substance: VARENICLINE TARTRATE
     Indication: SMOKING CESSATION THERAPY
     Dosage: 1 MG, 2X/DAY
  3. CHANTIX [Suspect]
     Active Substance: VARENICLINE TARTRATE
     Dosage: 0.5 MG, ALTERNATE DAY

REACTIONS (4)
  - Penile swelling [Recovered/Resolved]
  - Rash [Recovered/Resolved]
  - Incorrect dosage administered [Unknown]
  - Arthralgia [Recovered/Resolved]
